FAERS Safety Report 9900590 (Version 3)
Quarter: 2014Q2

REPORT INFORMATION
  Report Type: Spontaneous
  Country: US (occurrence: US)
  Receive Date: 20140217
  Receipt Date: 20140429
  Transmission Date: 20141212
  Serious: Yes (Hospitalization)
  Sender: FDA-Public Use
  Company Number: US-BIOGENIDEC-2014BI014124

PATIENT
  Age: 65 Year
  Sex: Female

DRUGS (1)
  1. TECFIDERA [Suspect]
     Indication: RELAPSING-REMITTING MULTIPLE SCLEROSIS
     Route: 048
     Dates: start: 20131217, end: 20140101

REACTIONS (5)
  - Respiratory failure [Recovered/Resolved]
  - Apparent death [Recovered/Resolved]
  - Overdose [Recovered/Resolved]
  - Feeling abnormal [Not Recovered/Not Resolved]
  - Aphasia [Not Recovered/Not Resolved]
